FAERS Safety Report 5696569-X (Version None)
Quarter: 2008Q2

REPORT INFORMATION
  Report Type: 
  Country: None (occurrence: None)
  Receive Date: 20080408
  Receipt Date: 20080408
  Transmission Date: 20081010
  Serious: Yes (Hospitalization, Disabling, Other)
  Sender: FDA-Public Use
  Company Number: None

PATIENT
  Sex: Male
  Weight: 80.7403 kg

DRUGS (2)
  1. HEPARIN [Suspect]
     Indication: CENTRAL VENOUS CATHETERISATION
     Dosage: 5 ML DAILY IV
     Route: 042
     Dates: start: 20060505, end: 20080404
  2. HEPARIN [Suspect]

REACTIONS (5)
  - DIARRHOEA [None]
  - HYPOTENSION [None]
  - MALAISE [None]
  - NAUSEA [None]
  - VOMITING [None]
